FAERS Safety Report 5124620-4 (Version None)
Quarter: 2006Q4

REPORT INFORMATION
  Report Type: 
  Country: None (occurrence: None)
  Receive Date: 20061006
  Receipt Date: 20061006
  Transmission Date: 20070319
  Serious: Yes (Other)
  Sender: FDA-Public Use
  Company Number: None

PATIENT
  Age: 46 Year
  Sex: Female
  Weight: 79.3795 kg

DRUGS (2)
  1. PROAIR HFA [Suspect]
     Indication: HYPERSENSITIVITY
     Dosage: 2-5 PUFFS-INHALED 4-6 HOURS NASAL
     Route: 045
     Dates: start: 20061002, end: 20061004
  2. PROAIR HFA [Suspect]
     Indication: PULMONARY CONGESTION
     Dosage: 2-5 PUFFS-INHALED 4-6 HOURS NASAL
     Route: 045
     Dates: start: 20061002, end: 20061004

REACTIONS (5)
  - DYSPHONIA [None]
  - FEELING ABNORMAL [None]
  - HEART RATE INCREASED [None]
  - INSOMNIA [None]
  - PALPITATIONS [None]
